FAERS Safety Report 20495512 (Version 1)
Quarter: 2022Q1

REPORT INFORMATION
  Report Type: Spontaneous
  Country: GB (occurrence: GB)
  Receive Date: 20220221
  Receipt Date: 20220221
  Transmission Date: 20220423
  Serious: Yes (Hospitalization, Other)
  Sender: FDA-Public Use
  Company Number: GB-RP-021875

PATIENT
  Age: 40 Year
  Sex: Male

DRUGS (5)
  1. CLARITHROMYCIN [Interacting]
     Active Substance: CLARITHROMYCIN
     Indication: Product used for unknown indication
     Dosage: 500 MILLIGRAM
  2. METHADONE [Interacting]
     Active Substance: METHADONE HYDROCHLORIDE
     Indication: Product used for unknown indication
     Dosage: 60 MILLIGRAM, QD
  3. AMOXICILLIN [Concomitant]
     Active Substance: AMOXICILLIN
     Dosage: 500 MILLIGRAM
  4. AROVI [Concomitant]
     Dosage: 130 MILLIGRAM, QD
     Route: 058
  5. NALOXONE [Concomitant]
     Active Substance: NALOXONE
     Dosage: 400 G PER HOUR FOR 10 HOURS

REACTIONS (5)
  - Drug interaction [Recovered/Resolved]
  - Toxicity to various agents [Recovered/Resolved]
  - Respiratory failure [Recovered/Resolved]
  - Miosis [Recovered/Resolved]
  - Electrocardiogram QT prolonged [Recovered/Resolved]
